FAERS Safety Report 7823017-3 (Version None)
Quarter: 2011Q4

REPORT INFORMATION
  Report Type: 
  Country: None (occurrence: None)
  Receive Date: 20111018
  Receipt Date: 20101013
  Transmission Date: 20120403
  Serious: No
  Sender: FDA-Public Use
  Company Number: US-ASTRAZENECA-2010SE48298

PATIENT
  Age: 73 Year
  Sex: Female

DRUGS (7)
  1. VITAMINS B6 [Concomitant]
  2. VITAMINS D [Concomitant]
  3. SPIRIVA [Concomitant]
  4. ALBUTEROL VIA NEBULIZER [Concomitant]
  5. ASPIRIN [Concomitant]
  6. SYMBICORT [Suspect]
     Indication: CHRONIC OBSTRUCTIVE PULMONARY DISEASE
     Dosage: TOTAL DAILY DOSE 160 MCG TWO TIMES A DAY
     Route: 055
     Dates: start: 20100901
  7. VITAMINS B12 [Concomitant]

REACTIONS (1)
  - ALOPECIA [None]
